FAERS Safety Report 9491034 (Version 2)
Quarter: 2013Q3

REPORT INFORMATION
  Report Type: Spontaneous
  Country: AU (occurrence: AU)
  Receive Date: 20130830
  Receipt Date: 20130830
  Transmission Date: 20140515
  Serious: Yes (Disabling)
  Sender: FDA-Public Use
  Company Number: AU-B.I. PHARMACEUTICALS,INC./RIDGEFIELD-2013-AU-01046AU

PATIENT
  Age: 84 Year
  Sex: Male
  Weight: 60 kg

DRUGS (8)
  1. PRADAXA [Suspect]
     Indication: ATRIAL FIBRILLATION
     Dosage: 300 MG
     Dates: start: 201107, end: 201111
  2. ASPIRIN [Concomitant]
  3. LASIX [Concomitant]
  4. BICOR [Concomitant]
  5. COVERSYL [Concomitant]
  6. CRESTOR [Concomitant]
  7. EFEXOR [Concomitant]
  8. DIGOXIN [Concomitant]

REACTIONS (2)
  - Chronic obstructive pulmonary disease [Not Recovered/Not Resolved]
  - Off label use [Unknown]
